FAERS Safety Report 8610416-5 (Version None)
Quarter: 2012Q3

REPORT INFORMATION
  Report Type: 
  Country: None (occurrence: None)
  Receive Date: 20120822
  Receipt Date: 20120819
  Transmission Date: 20120928
  Serious: No
  Sender: FDA-Public Use
  Company Number: US-PFIZER INC-2012202981

PATIENT
  Age: 15 Year
  Sex: Female
  Weight: 45.805 kg

DRUGS (1)
  1. ADVIL [Suspect]
     Indication: HEADACHE
     Dosage: 200 MG, AS NEEDED
     Route: 048
     Dates: start: 20120811, end: 20120812

REACTIONS (2)
  - DRUG INEFFECTIVE [None]
  - PRODUCT LABEL ISSUE [None]
